FAERS Safety Report 19206410 (Version 2)
Quarter: 2021Q3

REPORT INFORMATION
  Report Type: Report from Study
  Country: MX (occurrence: MX)
  Receive Date: 20210503
  Receipt Date: 20210817
  Transmission Date: 20211014
  Serious: Yes (Hospitalization, Other)
  Sender: FDA-Public Use
  Company Number: NVSC2020MX149084

PATIENT
  Age: 24 Year
  Sex: Male
  Weight: 79.2 kg

DRUGS (4)
  1. SANDIMMUN [Concomitant]
     Active Substance: CYCLOSPORINE
     Dosage: 350 MG, Q12H
     Route: 048
     Dates: start: 20200623
  2. ELTROMBOPAG [Suspect]
     Active Substance: ELTROMBOPAG
     Indication: APLASTIC ANAEMIA
     Dosage: 150 MG, Q24H
     Route: 048
     Dates: start: 20200511
  3. SANDIMMUN [Concomitant]
     Active Substance: CYCLOSPORINE
     Indication: APLASTIC ANAEMIA
     Dosage: 350 MG, Q12H
     Route: 048
     Dates: start: 20200511, end: 20200519
  4. SANDIMMUN [Concomitant]
     Active Substance: CYCLOSPORINE
     Dosage: 400 MG, Q12H
     Route: 048
     Dates: start: 20200520, end: 20200525

REACTIONS (2)
  - Retinal haemorrhage [Recovered/Resolved]
  - COVID-19 [Recovered/Resolved]

NARRATIVE: CASE EVENT DATE: 20200525
